FAERS Safety Report 10155097 (Version 1)
Quarter: 2014Q2

REPORT INFORMATION
  Report Type: Spontaneous
  Country: US (occurrence: None)
  Receive Date: 20140505
  Receipt Date: 20140505
  Transmission Date: 20141212
  Serious: Yes (Life-Threatening)
  Sender: FDA-Public Use
  Company Number: None

PATIENT
  Age: 36 Year
  Sex: Male
  Weight: 74.39 kg

DRUGS (1)
  1. LEVOFLOXACIN [Suspect]
     Indication: SINUSITIS
     Dosage: 1 PILL ONCE DAILY TAKEN BY MOUTH
     Dates: start: 20140429, end: 20140430

REACTIONS (15)
  - Diarrhoea [None]
  - Paraesthesia [None]
  - Hypoaesthesia [None]
  - Confusional state [None]
  - Hyperhidrosis [None]
  - Dizziness [None]
  - Chest discomfort [None]
  - Arthralgia [None]
  - Feeling abnormal [None]
  - Drug intolerance [None]
  - Muscle spasms [None]
  - Asthenia [None]
  - Eye pain [None]
  - Headache [None]
  - Neuropathy peripheral [None]
